FAERS Safety Report 4546490-5 (Version None)
Quarter: 2005Q1

REPORT INFORMATION
  Report Type: 
  Country: None (occurrence: None)
  Receive Date: 20050103
  Receipt Date: 20041214
  Transmission Date: 20050727
  Serious: Yes (Hospitalization)
  Sender: FDA-Public Use
  Company Number: EWC041141420

PATIENT
  Age: 57 Year
  Sex: Male

DRUGS (4)
  1. ZYPREXA [Suspect]
     Indication: BIPOLAR DISORDER
     Dosage: 20 MG/1 DAY
     Dates: start: 20000101
  2. ZYPREXA [Suspect]
     Indication: MANIA
     Dosage: 20 MG/1 DAY
     Dates: start: 20000101
  3. ZYPREXA [Suspect]
     Indication: SCHIZOAFFECTIVE DISORDER
     Dosage: 20 MG/1 DAY
     Dates: start: 20000101
  4. STELAZINE [Concomitant]

REACTIONS (4)
  - FEELING ABNORMAL [None]
  - LEUKAEMIA [None]
  - PANCYTOPENIA [None]
  - PYREXIA [None]
